FAERS Safety Report 25982303 (Version 2)
Quarter: 2025Q4

REPORT INFORMATION
  Report Type: Spontaneous
  Country: EU (occurrence: EU)
  Receive Date: 20251031
  Receipt Date: 20251114
  Transmission Date: 20260117
  Serious: Yes (Hospitalization, Other)
  Sender: BRISTOL-MYERS SQUIBB COMPANY
  Company Number: None

PATIENT
  Age: 58 Year
  Sex: Male
  Weight: 112 kg

DRUGS (4)
  1. YERVOY [Suspect]
     Active Substance: IPILIMUMAB
     Indication: Product used for unknown indication
     Dosage: FIRST DOSE CYCLE 1 DOSE 1MG/KG
  2. OPDIVO [Suspect]
     Active Substance: NIVOLUMAB
     Indication: Product used for unknown indication
     Dosage: FIRST DOSE - CYCLE 1 DOSE 3MG/K
  3. LEVOTHYROXINE SODIUM [Concomitant]
     Active Substance: LEVOTHYROXINE SODIUM
     Indication: Product used for unknown indication
     Dosage: 1-0-0
  4. CLOPIDOGREL [Concomitant]
     Active Substance: CLOPIDOGREL BISULFATE
     Indication: Product used for unknown indication
     Dosage: 1-0-0

REACTIONS (7)
  - Dyspnoea [Recovered/Resolved]
  - Pyrexia [Recovering/Resolving]
  - Chest pain [Recovered/Resolved]
  - Obliterative bronchiolitis [Recovered/Resolved]
  - Pneumonia [Recovered/Resolved]
  - Micrococcus test positive [Unknown]
  - Bronchial wall thickening [Recovered/Resolved]

NARRATIVE: CASE EVENT DATE: 20251018
